FAERS Safety Report 7435611-2 (Version None)
Quarter: 2011Q2

REPORT INFORMATION
  Report Type: 
  Country: None (occurrence: None)
  Receive Date: 20110425
  Receipt Date: 20110222
  Transmission Date: 20111010
  Serious: Yes (Other)
  Sender: FDA-Public Use
  Company Number: US-BAYER-2011-017604

PATIENT
  Age: 28 Year
  Sex: Female

DRUGS (4)
  1. YAZ [Suspect]
     Indication: PRODUCT USED FOR UNKNOWN INDICATION
     Dosage: UNK
     Dates: start: 20060201, end: 20070701
  2. YAZ [Suspect]
     Dosage: UNK
     Dates: start: 20080601, end: 20091001
  3. APRI [Suspect]
     Dosage: UNK
     Dates: start: 20080601, end: 20091001
  4. APRI [Suspect]
     Indication: PRODUCT USED FOR UNKNOWN INDICATION
     Dosage: UNK
     Dates: start: 20060201, end: 20070701

REACTIONS (2)
  - CHOLECYSTECTOMY [None]
  - NEPHROLITHIASIS [None]
